FAERS Safety Report 4454145-0 (Version None)
Quarter: 2004Q3

REPORT INFORMATION
  Report Type: 
  Country: None (occurrence: None)
  Receive Date: 20040826
  Receipt Date: 20040715
  Transmission Date: 20050211
  Serious: No
  Sender: FDA-Public Use
  Company Number: WAES 0407USA01323

PATIENT
  Age: 69 Year
  Sex: Female

DRUGS (9)
  1. ZETIA [Suspect]
     Indication: BLOOD CHOLESTEROL INCREASED
     Dosage: 10 MG/DAILY/PO
     Route: 048
     Dates: start: 20040703, end: 20040715
  2. GAS-X [Concomitant]
  3. LASIX [Concomitant]
  4. LEXAPRO [Concomitant]
  5. SYNTHROID [Concomitant]
  6. VASOTEC [Concomitant]
  7. CLONAZEPAM [Concomitant]
  8. POTASSIUM [Concomitant]
  9. TRAZODONE HCL [Concomitant]

REACTIONS (6)
  - ABDOMINAL DISTENSION [None]
  - ASTHENIA [None]
  - BREAST PAIN [None]
  - NECK PAIN [None]
  - SPEECH DISORDER [None]
  - STOMACH DISCOMFORT [None]
